FAERS Safety Report 4656921-8 (Version None)
Quarter: 2005Q2

REPORT INFORMATION
  Report Type: 
  Country: None (occurrence: None)
  Receive Date: 20050506
  Receipt Date: 20050427
  Transmission Date: 20051028
  Serious: Yes (Death, Hospitalization)
  Sender: FDA-Public Use
  Company Number: 05P-163-0298627-00

PATIENT
  Sex: Female
  Weight: 77.1115 kg

DRUGS (10)
  1. HUMIRA [Suspect]
     Indication: RHEUMATOID ARTHRITIS
     Dosage: 40 MG, 1 IN 2 WK, SUBCUTANEOUS
     Route: 058
     Dates: start: 20030201, end: 20030905
  2. INSULIN [Concomitant]
  3. DILTIAZEM HYDROCHLORIDE [Concomitant]
  4. SERTRALINE HYDROCHLORIDE [Concomitant]
  5. LEFLUNOMIDE [Concomitant]
  6. FOSINOPRIL SODIUM [Concomitant]
  7. CALCITONIN-SALMON [Concomitant]
  8. PREDNISONE [Concomitant]
  9. PROPACET 100 [Concomitant]
  10. CALCIUM WITH VITAMIN D [Concomitant]

REACTIONS (3)
  - FUNGAL INFECTION [None]
  - PNEUMONIA [None]
  - SEPSIS [None]
